FAERS Safety Report 23469903 (Version 2)
Quarter: 2024Q1

REPORT INFORMATION
  Report Type: Report from Study
  Country: US (occurrence: US)
  Receive Date: 20240202
  Receipt Date: 20240206
  Transmission Date: 20240410
  Serious: Yes (Other)
  Sender: FDA-Public Use
  Company Number: US-GILEAD-2024-0660583

PATIENT
  Age: 63 Year
  Sex: Female

DRUGS (3)
  1. AMBRISENTAN [Suspect]
     Active Substance: AMBRISENTAN
     Indication: Pulmonary arterial hypertension
     Dosage: 10 MG, QD
     Route: 065
     Dates: start: 20220322
  2. UPTRAVI [Concomitant]
     Active Substance: SELEXIPAG
  3. TADALAFIL [Concomitant]
     Active Substance: TADALAFIL

REACTIONS (11)
  - Syncope [Recovered/Resolved]
  - Nausea [Recovered/Resolved]
  - Chest discomfort [Not Recovered/Not Resolved]
  - Pyrexia [Unknown]
  - Sinusitis [Unknown]
  - Ill-defined disorder [Unknown]
  - Cough [Unknown]
  - Head injury [Unknown]
  - Hypotension [Unknown]
  - Feeling cold [Recovered/Resolved]
  - Eye infection [Unknown]

NARRATIVE: CASE EVENT DATE: 20240124
